FAERS Safety Report 16442886 (Version 1)
Quarter: 2019Q2

REPORT INFORMATION
  Report Type: Spontaneous
  Country: US (occurrence: US)
  Receive Date: 20190617
  Receipt Date: 20190617
  Transmission Date: 20190711
  Serious: Yes (Other)
  Sender: FDA-Public Use
  Company Number: US-ALLERGAN-1924803US

PATIENT
  Sex: Female

DRUGS (4)
  1. LEVONORGESTREL UNK [Suspect]
     Active Substance: LEVONORGESTREL
     Indication: ENDOMETRIAL HYPERPLASIA
     Dosage: 52 MG, SINGLE
     Route: 015
  2. METFORMIN [Suspect]
     Active Substance: METFORMIN HYDROCHLORIDE
     Indication: ENDOMETRIAL HYPERPLASIA
     Dosage: UNK
     Route: 065
  3. AROMATASE INHIBITORS [Suspect]
     Active Substance: UNSPECIFIED INGREDIENT
     Indication: ENDOMETRIAL HYPERPLASIA
     Dosage: UNK
     Route: 065
  4. GONADOTROPIN RELEASING HORMONE ANALOGUES [Suspect]
     Active Substance: GONADORELIN
     Indication: ENDOMETRIAL HYPERPLASIA
     Dosage: UNK
     Route: 065

REACTIONS (2)
  - Endometrial cancer stage I [Unknown]
  - Off label use [Unknown]
